FAERS Safety Report 7649820-0 (Version None)
Quarter: 2011Q3

REPORT INFORMATION
  Report Type: 
  Country: None (occurrence: None)
  Receive Date: 20110727
  Receipt Date: 20110714
  Transmission Date: 20111222
  Serious: Yes (Hospitalization)
  Sender: FDA-Public Use
  Company Number: B0734181A

PATIENT
  Age: 85 Year
  Sex: Male

DRUGS (2)
  1. MIRTAZAPINE [Suspect]
     Indication: DEPRESSION
     Dosage: 15 MG / AT NIGHT
  2. ROPINIROLE HYDROCHLORIDE [Suspect]
     Indication: RESTLESS LEGS SYNDROME
     Dosage: 4 MG/ PER DAY

REACTIONS (19)
  - DEPRESSIVE SYMPTOM [None]
  - AGGRESSION [None]
  - BLOOD UREA INCREASED [None]
  - BLOOD GLUCOSE INCREASED [None]
  - PSYCHOTIC DISORDER [None]
  - PNEUMONIA [None]
  - HALLUCINATIONS, MIXED [None]
  - CONFUSIONAL STATE [None]
  - ABNORMAL BEHAVIOUR [None]
  - VISUAL ACUITY REDUCED [None]
  - MEAN CELL VOLUME INCREASED [None]
  - DEHYDRATION [None]
  - STRESS [None]
  - RESTLESS LEGS SYNDROME [None]
  - SUICIDAL IDEATION [None]
  - CONDITION AGGRAVATED [None]
  - SLEEP DISORDER [None]
  - DYSPHORIA [None]
  - BLOOD CREATININE INCREASED [None]
